FAERS Safety Report 7572254-4 (Version None)
Quarter: 2011Q2

REPORT INFORMATION
  Report Type: 
  Country: None (occurrence: None)
  Receive Date: 20110624
  Receipt Date: 20110613
  Transmission Date: 20111010
  Serious: Yes (Other)
  Sender: FDA-Public Use
  Company Number: PHHY2011US32044

PATIENT
  Sex: Female
  Weight: 73 kg

DRUGS (6)
  1. DIGOXIN [Concomitant]
     Indication: ATRIAL FIBRILLATION
     Dosage: 0.25 MG, UNK
     Route: 065
  2. CELEBREX [Concomitant]
     Indication: ATRIAL FIBRILLATION
     Dosage: 100 MG, DAILY
     Route: 065
  3. OMEPRAZOLE [Concomitant]
     Indication: GASTROOESOPHAGEAL REFLUX DISEASE
     Dosage: 20 MG, DAILY
     Route: 065
  4. CARVEDIL [Concomitant]
     Indication: ATRIAL FIBRILLATION
     Dosage: 2.5 MG, UNK
     Route: 065
  5. GLEEVEC [Suspect]
     Indication: CHRONIC MYELOID LEUKAEMIA
     Dosage: 400 MG, DAILY
     Route: 048
     Dates: start: 20070401
  6. PAXIL [Concomitant]
     Indication: DEPRESSION
     Dosage: 20 MG, DAILY

REACTIONS (4)
  - FALL [None]
  - LACERATION [None]
  - CELLULITIS [None]
  - OEDEMA PERIPHERAL [None]
